FAERS Safety Report 5252244-7 (Version None)
Quarter: 2007Q1

REPORT INFORMATION
  Report Type: 
  Country: None (occurrence: None)
  Receive Date: 20070227
  Receipt Date: 20070227
  Transmission Date: 20070707
  Serious: No
  Sender: FDA-Public Use
  Company Number: None

PATIENT
  Age: 72 Year
  Sex: Female
  Weight: 63.5036 kg

DRUGS (1)
  1. HYOSCYAMINE 0.375 MG ER [Suspect]
     Indication: ABDOMINAL DISTENSION
     Dosage: 1   2 X DAY
     Dates: start: 20061201, end: 20070201

REACTIONS (17)
  - ABDOMINAL DISTENSION [None]
  - AGITATION [None]
  - ASTHENIA [None]
  - CONSTIPATION [None]
  - DIZZINESS [None]
  - DRY MOUTH [None]
  - DYSPNOEA [None]
  - DYSURIA [None]
  - HEART RATE INCREASED [None]
  - HEART RATE IRREGULAR [None]
  - INSOMNIA [None]
  - MUSCLE SPASMS [None]
  - MUSCLE TWITCHING [None]
  - NERVOUSNESS [None]
  - SOMNOLENCE [None]
  - THIRST [None]
  - VISION BLURRED [None]
